FAERS Safety Report 7834767-7 (Version None)
Quarter: 2011Q4

REPORT INFORMATION
  Report Type: 
  Country: None (occurrence: None)
  Receive Date: 20111024
  Receipt Date: 20111017
  Transmission Date: 20120403
  Serious: Yes (Hospitalization)
  Sender: FDA-Public Use
  Company Number: US-ALEXION-A201101548

PATIENT
  Sex: Female
  Weight: 107.02 kg

DRUGS (15)
  1. TIGAN [Concomitant]
     Indication: NAUSEA
     Dosage: 300 MG UNK
     Route: 048
  2. SOLIRIS [Suspect]
     Indication: PAROXYSMAL NOCTURNAL HAEMOGLOBINURIA
     Dosage: 900 MG Q2W
     Route: 042
  3. FERROUS SULFATE TAB [Concomitant]
     Dosage: 325 MG UNK
     Route: 048
  4. FOLIC ACID [Concomitant]
     Dosage: 1 MG UNK
     Route: 048
  5. OMEPRAZOLE [Concomitant]
     Dosage: 20 MG UNK
     Route: 048
  6. ALENDRONATE SODIUM [Concomitant]
     Indication: OSTEOPOROSIS
     Dosage: 70 MG UNK
     Route: 048
  7. BUMETANIDE [Concomitant]
     Indication: HYPERTENSION
     Dosage: 1 MG UNK
     Route: 048
  8. VICODIN ES [Concomitant]
     Dosage: 75 MG UNK
     Route: 048
  9. HYDROCHLOROTHIAZIDE [Concomitant]
     Indication: HYPERTENSION
     Dosage: 25 MG UNK
  10. NITROGLYCERIN [Concomitant]
     Dosage: 0.3 MG UNK
     Route: 060
  11. KLOR-CON [Concomitant]
     Dosage: 20 MEQ UNK
     Route: 048
  12. SYNTHROID [Concomitant]
     Dosage: 125 MCG UNK
     Route: 048
  13. VITAMIN D [Concomitant]
     Indication: OSTEOPOROSIS
     Dosage: UNK
     Route: 048
  14. FORTICAL [Concomitant]
     Dosage: UNK
     Route: 045
  15. AMBIEN [Concomitant]
     Dosage: 5 MG UNK
     Route: 048

REACTIONS (3)
  - CHEST PAIN [None]
  - THROAT TIGHTNESS [None]
  - ABDOMINAL PAIN [None]
